FAERS Safety Report 5746959-1 (Version None)
Quarter: 2008Q2

REPORT INFORMATION
  Report Type: 
  Country: None (occurrence: None)
  Receive Date: 20080519
  Receipt Date: 20070710
  Transmission Date: 20081010
  Serious: Yes (Other)
  Sender: FDA-Public Use
  Company Number: PHEH2007US09844

PATIENT
  Sex: Female

DRUGS (2)
  1. TEGRETOL-XR [Suspect]
  2. INDERAL [Suspect]

REACTIONS (1)
  - ARRHYTHMIA [None]
